FAERS Safety Report 19449418 (Version 2)
Quarter: 2021Q2

REPORT INFORMATION
  Report Type: Report from Study
  Country: CN (occurrence: CN)
  Receive Date: 20210622
  Receipt Date: 20210628
  Transmission Date: 20210717
  Serious: Yes (Hospitalization, Other)
  Sender: FDA-Public Use
  Company Number: CN-BRISTOL-MYERS SQUIBB COMPANY-BMS-2021-058109

PATIENT
  Age: 64 Year
  Sex: Male
  Weight: 80 kg

DRUGS (14)
  1. TROPISETRON HYDROCHLORIDE [Concomitant]
     Active Substance: TROPISETRON HYDROCHLORIDE
     Dosage: 5 MILLIGRAM
     Route: 042
     Dates: start: 20210604, end: 20210604
  2. METOCLOPRAMIDE DIHYDROCHLORIDE [Concomitant]
     Indication: PRODUCT USED FOR UNKNOWN INDICATION
     Dosage: 10 MILLIGRAM
     Route: 030
     Dates: start: 20210602, end: 20210602
  3. VITAMIN C [Concomitant]
     Active Substance: ASCORBIC ACID
     Dosage: 2 GRAM
     Route: 042
     Dates: start: 20210603, end: 20210603
  4. METOCLOPRAMIDE DIHYDROCHLORIDE [Concomitant]
     Dosage: 10 MILLIGRAM
     Route: 030
     Dates: start: 20210603, end: 20210603
  5. NIVOLUMAB [Suspect]
     Active Substance: NIVOLUMAB
     Indication: NON-SMALL CELL LUNG CANCER
     Dosage: 360 MILLIGRAM
     Route: 042
     Dates: start: 20210602
  6. TROPISETRON HYDROCHLORIDE [Concomitant]
     Active Substance: TROPISETRON HYDROCHLORIDE
     Dosage: 5 MILLIGRAM
     Route: 042
     Dates: start: 20210603, end: 20210603
  7. POLYENE PHOSPHATIDYLCHOLINE [Concomitant]
     Active Substance: PHOSPHOLIPID
     Indication: PRODUCT USED FOR UNKNOWN INDICATION
     Dosage: 228 MILLIGRAM, BID
     Route: 048
     Dates: start: 20210524, end: 20210531
  8. VITAMIN C [Concomitant]
     Active Substance: ASCORBIC ACID
     Dosage: 2 GRAM
     Route: 042
     Dates: start: 20210604, end: 20210604
  9. TROPISETRON HYDROCHLORIDE [Concomitant]
     Active Substance: TROPISETRON HYDROCHLORIDE
     Indication: PRODUCT USED FOR UNKNOWN INDICATION
     Dosage: 5 MILLIGRAM
     Route: 042
     Dates: start: 20210602, end: 20210602
  10. METOCLOPRAMIDE DIHYDROCHLORIDE [Concomitant]
     Dosage: 21.5 GRAM
     Route: 042
     Dates: start: 20210616
  11. ETOPOSIDE. [Suspect]
     Active Substance: ETOPOSIDE
     Indication: NON-SMALL CELL LUNG CANCER
     Dosage: 82.8 MILLIGRAM
     Route: 042
     Dates: start: 20210602
  12. CARBOPLATIN. [Suspect]
     Active Substance: CARBOPLATIN
     Indication: NON-SMALL CELL LUNG CANCER
     Dosage: 253.6 MILLIGRAM
     Route: 042
     Dates: start: 20210602
  13. VITAMIN C [Concomitant]
     Active Substance: ASCORBIC ACID
     Indication: PRODUCT USED FOR UNKNOWN INDICATION
     Dosage: 2 GRAM
     Route: 042
     Dates: start: 20210602, end: 20210602
  14. METOCLOPRAMIDE DIHYDROCHLORIDE [Concomitant]
     Dosage: 10 MILLIGRAM
     Route: 030
     Dates: start: 20210604, end: 20210604

REACTIONS (1)
  - Myelosuppression [Not Recovered/Not Resolved]

NARRATIVE: CASE EVENT DATE: 20210613
